FAERS Safety Report 23112225 (Version 3)
Quarter: 2025Q1

REPORT INFORMATION
  Report Type: Report from Study
  Country: CO (occurrence: CO)
  Receive Date: 20231026
  Receipt Date: 20250205
  Transmission Date: 20250409
  Serious: No
  Sender: ROCHE
  Company Number: CO-ROCHE-3444509

PATIENT
  Age: 39 Year
  Sex: Female
  Weight: 50.5 kg

DRUGS (6)
  1. OCRELIZUMAB [Suspect]
     Active Substance: OCRELIZUMAB
     Indication: Relapsing-remitting multiple sclerosis
     Dosage: ON 04-FEB-2022,  07-OCT-2022 RECEIVED SUBSEQUENT DOSE 500 ML? ON 21-MAY-2021 RECEIVED SUBSEQUENT DOS
     Route: 065
     Dates: start: 20210507, end: 20210507
  2. HYDROLYZED COLLAGEN [Concomitant]
     Route: 048
     Dates: start: 20221110, end: 20231119
  3. CLARITHROMYCIN [Concomitant]
     Active Substance: CLARITHROMYCIN
     Route: 048
     Dates: start: 20230115, end: 20230129
  4. AMOXICILLIN [Concomitant]
     Active Substance: AMOXICILLIN
     Route: 048
     Dates: start: 20230115, end: 20230129
  5. ESOMEPRAZOLE [Concomitant]
     Active Substance: ESOMEPRAZOLE
     Route: 048
     Dates: start: 20230115, end: 20230129
  6. MINOXIDIL [Concomitant]
     Active Substance: MINOXIDIL
     Indication: Prophylaxis
     Dosage: 3 TIMES PER WEEK
     Route: 048
     Dates: start: 20221215

REACTIONS (1)
  - Helicobacter infection [Recovered/Resolved]

NARRATIVE: CASE EVENT DATE: 20230115
